FAERS Safety Report 5008116-6 (Version None)
Quarter: 2006Q2

REPORT INFORMATION
  Report Type: 
  Country: None (occurrence: None)
  Receive Date: 20060404
  Receipt Date: 20050919
  Transmission Date: 20061013
  Serious: Yes (Other)
  Sender: FDA-Public Use
  Company Number: 2005110949

PATIENT
  Sex: Male

DRUGS (5)
  1. GEODON [Suspect]
     Indication: HALLUCINATION, AUDITORY
     Dosage: 220 MG (1 IN 1 D),
     Dates: start: 20050501
  2. GEODON [Suspect]
     Indication: SCHIZOPHRENIA
     Dosage: 220 MG (1 IN 1 D),
     Dates: start: 20050501
  3. KLONOPIN [Concomitant]
  4. RISPERDAL [Concomitant]
  5. COUMADIN [Concomitant]

REACTIONS (1)
  - PRIAPISM [None]
